FAERS Safety Report 14984996 (Version 2)
Quarter: 2018Q3

REPORT INFORMATION
  Report Type: Spontaneous
  Country: US (occurrence: US)
  Receive Date: 20180607
  Receipt Date: 20180713
  Transmission Date: 20181010
  Serious: No
  Sender: FDA-Public Use
  Company Number: US-009507513-1406USA009359

PATIENT
  Age: 32 Year
  Sex: Female

DRUGS (5)
  1. TRUVADA [Suspect]
     Active Substance: EMTRICITABINE\TENOFOVIR DISOPROXIL FUMARATE
     Indication: HIV INFECTION
     Dosage: COURSE NO. 1, TOTAL DAILY DOSE: 1 TAB/CAP
     Route: 048
     Dates: start: 20121024
  2. ISENTRESS [Suspect]
     Active Substance: RALTEGRAVIR POTASSIUM
     Indication: HIV INFECTION
     Dosage: 800 MG/DAY, COURSE NO. 1
     Route: 048
     Dates: start: 20121024
  3. EVIPLERA [Suspect]
     Active Substance: EMTRICITABINE\RILPIVIRINE\TENOFOVIR DISOPROXIL FUMARATE
     Indication: HIV INFECTION
     Dosage: COURSE NO. 1, 1TAB/CAP, DAILY
     Route: 048
     Dates: start: 20120613, end: 20121023
  4. COMPLERA [Suspect]
     Active Substance: EMTRICITABINE\RILPIVIRINE HYDROCHLORIDE\TENOFOVIR DISOPROXIL FUMARATE
     Indication: HIV INFECTION
     Dosage: COURSE NO:1, 1 TAB/CAP, DAILY
     Route: 048
     Dates: start: 20120613, end: 20121023
  5. PREZISTA [Suspect]
     Active Substance: DARUNAVIR ETHANOLATE
     Indication: HIV INFECTION
     Dosage: COURSE NO. 1, TOTAL DAILY DOSE: 1400MG/DAY
     Route: 048
     Dates: start: 20121024

REACTIONS (1)
  - Maternal exposure during pregnancy [Recovered/Resolved]
